FAERS Safety Report 16004259 (Version 1)
Quarter: 2019Q1

REPORT INFORMATION
  Report Type: Spontaneous
  Country: FR (occurrence: FR)
  Receive Date: 20190226
  Receipt Date: 20190226
  Transmission Date: 20190418
  Serious: Yes (Hospitalization)
  Sender: FDA-Public Use
  Company Number: FR-ORION CORPORATION ORION PHARMA-19_00005576

PATIENT
  Age: 52 Year
  Sex: Female
  Weight: 100 kg

DRUGS (8)
  1. SPECIAFOLDINE [Concomitant]
     Active Substance: FOLIC ACID
     Route: 065
  2. TEMERIT [Suspect]
     Active Substance: NEBIVOLOL
     Indication: HYPERTENSION
     Route: 048
     Dates: start: 2017, end: 201804
  3. INEXIUM [Concomitant]
     Active Substance: ESOMEPRAZOLE
     Route: 065
  4. UVEDOSE [Concomitant]
     Active Substance: CHOLECALCIFEROL
     Route: 065
  5. STRESAM [Concomitant]
     Active Substance: ETIFOXINE
     Route: 065
  6. INFLECTRA [Suspect]
     Active Substance: INFLIXIMAB-DYYB
     Indication: RHEUMATOID ARTHRITIS
     Route: 042
     Dates: start: 2015
  7. METHOTREXATE (TRADE NAME UNKNOWN) [Suspect]
     Active Substance: METHOTREXATE
     Indication: RHEUMATOID ARTHRITIS
     Route: 048
     Dates: start: 1993
  8. INFLIXIMAB [Suspect]
     Active Substance: INFLIXIMAB
     Indication: RHEUMATOID ARTHRITIS
     Route: 042
     Dates: start: 2001

REACTIONS (2)
  - Alveolitis [Not Recovered/Not Resolved]
  - Chest X-ray abnormal [Not Recovered/Not Resolved]

NARRATIVE: CASE EVENT DATE: 20171006
